FAERS Safety Report 7985840-4 (Version None)
Quarter: 2011Q4

REPORT INFORMATION
  Report Type: 
  Country: None (occurrence: None)
  Receive Date: 20111216
  Receipt Date: 20111207
  Transmission Date: 20120403
  Serious: Yes (Death)
  Sender: FDA-Public Use
  Company Number: US-PFIZER INC-2011258752

PATIENT
  Sex: Male
  Weight: 64.9 kg

DRUGS (6)
  1. TEMSIROLIMUS [Suspect]
     Indication: NEOPLASM MALIGNANT
     Dosage: 25 MG, WEEKLY
     Route: 042
     Dates: start: 20111017
  2. XELODA [Suspect]
     Indication: NEOPLASM MALIGNANT
     Dosage: 1000 MG AM, 1500 MG PM, 7 DAYS ON/7 DAYS OFF
     Dates: start: 20111017
  3. MORPHINE SULFATE [Concomitant]
     Indication: PAIN
     Dosage: UNK
     Route: 058
     Dates: end: 20111023
  4. ZOLPIDEM [Concomitant]
     Indication: INSOMNIA
     Dosage: UNK
     Route: 048
     Dates: end: 20111023
  5. TERAZOSIN HYDROCHLORIDE [Concomitant]
     Indication: PROSTATOMEGALY
     Dosage: UNK
     Route: 048
     Dates: end: 20111023
  6. PROCHLORPERAZINE [Concomitant]
     Indication: NAUSEA
     Dosage: UNK
     Route: 048
     Dates: end: 20111023

REACTIONS (2)
  - NEOPLASM MALIGNANT [None]
  - DISEASE PROGRESSION [None]
